FAERS Safety Report 9496586 (Version 2)
Quarter: 2013Q3

REPORT INFORMATION
  Report Type: Spontaneous
  Country: ZA (occurrence: ZA)
  Receive Date: 20130904
  Receipt Date: 20130904
  Transmission Date: 20140515
  Serious: Yes (Other)
  Sender: FDA-Public Use
  Company Number: ZA-NOVOPROD-381635

PATIENT
  Age: 27 Year
  Sex: Female
  Weight: 105 kg

DRUGS (1)
  1. NOVORAPID FLEXPEN [Suspect]
     Indication: GESTATIONAL DIABETES
     Dosage: 2 IU, PRN
     Route: 058
     Dates: start: 20130625

REACTIONS (2)
  - Preterm premature rupture of membranes [Unknown]
  - Exposure during pregnancy [Unknown]
